FAERS Safety Report 9630610 (Version 1)
Quarter: 2013Q4

REPORT INFORMATION
  Report Type: Spontaneous
  Country: US (occurrence: None)
  Receive Date: 20131016
  Receipt Date: 20131016
  Transmission Date: 20140711
  Serious: Yes (Other)
  Sender: FDA-Public Use
  Company Number: None

PATIENT
  Age: 68 Year
  Sex: Male
  Weight: 87.09 kg

DRUGS (2)
  1. ALVESCO [Suspect]
     Indication: PNEUMONITIS
     Dosage: 2 PUFFS AND MORNING
     Route: 055
  2. ALVESCO [Suspect]
     Indication: ASTHMA
     Dosage: 2 PUFFS AND MORNING
     Route: 055

REACTIONS (1)
  - Blood pressure increased [None]
